FAERS Safety Report 9487218 (Version 2)
Quarter: 2013Q3

REPORT INFORMATION
  Report Type: Spontaneous
  Country: CA (occurrence: CA)
  Receive Date: 20130829
  Receipt Date: 20130923
  Transmission Date: 20140515
  Serious: Yes (Hospitalization)
  Sender: FDA-Public Use
  Company Number: CA-B.I. PHARMACEUTICALS,INC./RIDGEFIELD-2013-CN-01480CN

PATIENT
  Age: 85 Year
  Sex: Female

DRUGS (3)
  1. PRADAXA [Suspect]
     Indication: ATRIAL FIBRILLATION
     Dosage: 220 MG
  2. PLAVIX [Concomitant]
  3. SOME ARTHRITIS MEDICATION [Concomitant]
     Indication: ARTHRITIS

REACTIONS (1)
  - Cardiac failure [Recovered/Resolved]
